FAERS Safety Report 17668681 (Version 3)
Quarter: 2020Q2

REPORT INFORMATION
  Report Type: Report from Study
  Country: ES (occurrence: ES)
  Receive Date: 20200415
  Receipt Date: 20200618
  Transmission Date: 20200713
  Serious: Yes (Death, Hospitalization)
  Sender: FDA-Public Use
  Company Number: ES-ROCHE-2504231

PATIENT
  Age: 66 Year
  Sex: Male
  Weight: 54 kg

DRUGS (15)
  1. PIPERACILLIN. [Concomitant]
     Active Substance: PIPERACILLIN SODIUM
     Route: 048
     Dates: start: 20200220, end: 20200224
  2. METOCLOPRAMIDE. [Concomitant]
     Active Substance: METOCLOPRAMIDE
     Indication: VOMITING
     Route: 048
     Dates: start: 20200129
  3. TAZOBACTAM [Concomitant]
     Active Substance: TAZOBACTAM
     Route: 048
     Dates: start: 20200220, end: 20200228
  4. CARBOPLATIN. [Suspect]
     Active Substance: CARBOPLATIN
     Indication: NON-SMALL CELL LUNG CANCER
     Dosage: AUC 5?LATEST DOSE OF CARBOPLATIN RECEIVED PRIOR TO BACTEREMIA ON 09/DEC/2019?LATEST DOSE OF CARBOPLA
     Route: 042
  5. IPRATROPIUM BROMIDE. [Concomitant]
     Active Substance: IPRATROPIUM BROMIDE
     Route: 045
     Dates: start: 20200124
  6. FENTANYL. [Concomitant]
     Active Substance: FENTANYL
     Indication: PAIN
     Route: 042
     Dates: start: 20200220
  7. MOXIFLOXACIN. [Concomitant]
     Active Substance: MOXIFLOXACIN
     Route: 048
     Dates: start: 20200228
  8. METAMIZOLE [Concomitant]
     Active Substance: METAMIZOLE
     Dosage: 2 GR/ML
     Route: 048
     Dates: start: 20200313
  9. ATEZOLIZUMAB. [Suspect]
     Active Substance: ATEZOLIZUMAB
     Indication: NON-SMALL CELL LUNG CANCER
     Dosage: LATEST DOSE OF ATEZOLIZUMAB RECEIVED PRIOR TO BACTEREMIA AND WORSENING OF CHRONIC ISCHEMIA ON 09/DEC
     Route: 042
  10. PARACETAMOL [Concomitant]
     Active Substance: ACETAMINOPHEN
     Indication: PYREXIA
     Route: 048
     Dates: start: 20200123, end: 20200130
  11. METHYLPREDNISOLONE. [Concomitant]
     Active Substance: METHYLPREDNISOLONE
     Route: 042
     Dates: start: 20200219
  12. FENTANYL. [Concomitant]
     Active Substance: FENTANYL
     Route: 058
     Dates: start: 20200324, end: 20200328
  13. QUETIAPINE. [Concomitant]
     Active Substance: QUETIAPINE
     Indication: EMOTIONAL DISTRESS
     Route: 048
     Dates: start: 20200217
  14. PEMETREXED. [Suspect]
     Active Substance: PEMETREXED
     Indication: NON-SMALL CELL LUNG CANCER
     Dosage: LATEST DOSE OF PEMETREXED RECEIVED PRIOR TO BACTEREMIA ON 09/DEC/2019?LATEST DOSE OF PEMETREXED RECE
     Route: 042
     Dates: start: 20191209
  15. FENTANYL. [Concomitant]
     Active Substance: FENTANYL
     Indication: PROPHYLAXIS
     Route: 062
     Dates: start: 20200217

REACTIONS (7)
  - Cardio-respiratory arrest [Fatal]
  - Pain in extremity [Unknown]
  - Bacteraemia [Recovered/Resolved]
  - Upper respiratory tract infection [Recovered/Resolved]
  - Ischaemia [Recovered/Resolved with Sequelae]
  - Dyspnoea [Unknown]
  - Tuberculosis [Not Recovered/Not Resolved]

NARRATIVE: CASE EVENT DATE: 20191213
